FAERS Safety Report 6152609-5 (Version None)
Quarter: 2009Q2

REPORT INFORMATION
  Report Type: 
  Country: None (occurrence: None)
  Receive Date: 20090413
  Receipt Date: 20090406
  Transmission Date: 20091009
  Serious: Yes (Life-Threatening)
  Sender: FDA-Public Use
  Company Number: ES-CELGENEUS-144-21880-09040667

PATIENT
  Sex: Male
  Weight: 72 kg

DRUGS (5)
  1. REVLIMID [Suspect]
     Indication: MYELOFIBROSIS
     Route: 048
  2. HYDREA [Concomitant]
     Indication: DRUG USE FOR UNKNOWN INDICATION
  3. EXJADE [Concomitant]
     Route: 048
  4. COROPRES [Concomitant]
     Route: 065
  5. CANDESARTAN [Concomitant]
     Route: 065

REACTIONS (1)
  - DEEP VEIN THROMBOSIS [None]
